FAERS Safety Report 4587139-5 (Version None)
Quarter: 2005Q1

REPORT INFORMATION
  Report Type: 
  Country: None (occurrence: None)
  Receive Date: 20050215
  Receipt Date: 20050207
  Transmission Date: 20050727
  Serious: Yes (Death)
  Sender: FDA-Public Use
  Company Number: 2001-11-0061

PATIENT
  Age: 52 Year
  Sex: Female

DRUGS (6)
  1. THALOMID [Suspect]
     Indication: MYELODYSPLASTIC SYNDROME
     Dosage: 100 MG, QHS, ORAL
     Route: 048
     Dates: start: 20011029, end: 20011110
  2. ARSENIC TRIOXIDE (ARSENIC TRIOXIDE) (INJECTION) [Suspect]
     Indication: MYELODYSPLASTIC SYNDROME
     Dosage: 0.25 MG/KG,QD X 5D/WK FOR 2 WKS, THEN 2 WKS OFF, INTRAVENOUS
     Route: 042
  3. PYDIDOXINE (PYRIDOXINE) [Concomitant]
  4. DRUG USED IN DIABETES (DRUG ISED IN DIABETES) [Concomitant]
  5. ANTIHYPERTENSIVES (ANTIHYPERTENSIVES) [Concomitant]
  6. ANALGESICS (ANALGESICS) [Concomitant]

REACTIONS (4)
  - FALL [None]
  - HEAD INJURY [None]
  - SUBDURAL HAEMATOMA [None]
  - SUBDURAL HAEMORRHAGE [None]
